FAERS Safety Report 4591435-5 (Version None)
Quarter: 2005Q1

REPORT INFORMATION
  Report Type: 
  Country: None (occurrence: None)
  Receive Date: 20050223
  Receipt Date: 20050223
  Transmission Date: 20050727
  Serious: Yes (Death)
  Sender: FDA-Public Use
  Company Number: None

PATIENT
  Age: 38 Year
  Sex: Male
  Weight: 104.3273 kg

DRUGS (3)
  1. CITALOPRAM HYDROBROMIDE [Suspect]
     Indication: SCHIZOPHRENIA
     Dosage: 60 MG/DAY
     Dates: start: 20000101
  2. CLOZAPINE [Suspect]
     Indication: SCHIZOPHRENIA
     Dosage: 350 MG 1 DAY
     Dates: start: 20000101
  3. DEPAKOTE [Suspect]
     Indication: SCHIZOPHRENIA
     Dosage: 1000 MG/DAY
     Dates: start: 20000101

REACTIONS (3)
  - ARRHYTHMIA [None]
  - DRUG LEVEL INCREASED [None]
  - SUDDEN DEATH [None]
